FAERS Safety Report 8920560 (Version 2)
Quarter: 2012Q4

REPORT INFORMATION
  Report Type: 
  Country: US (occurrence: US)
  Receive Date: 20121121
  Receipt Date: 20121130
  Transmission Date: 20130627
  Serious: Yes (Hospitalization)
  Sender: FDA-Public Use
  Company Number: US-PURDUE-USA-2012-0095739

PATIENT
  Age: 44 Year
  Sex: Male

DRUGS (5)
  1. DILAUDID TABLET [Suspect]
     Indication: BACK PAIN
     Dosage: 8 mg, bid
     Route: 048
     Dates: start: 201202
  2. DILAUDID TABLET [Suspect]
     Dosage: 4 mg, bid
     Route: 048
     Dates: start: 201201, end: 201202
  3. MORPHINE SULFATE (SIMILAR TO NDA 19-516) [Concomitant]
     Indication: BREAKTHROUGH PAIN
     Dosage: UNK
     Route: 048
  4. DIAZEPAM [Concomitant]
     Indication: ANXIETY
     Dosage: 1 mg, prn
     Route: 048
  5. ADDERALL [Concomitant]
     Indication: ATTENTION DEFICIT/HYPERACTIVITY DISORDER
     Dosage: 20 mg, daily
     Route: 048

REACTIONS (3)
  - Wound infection [Unknown]
  - Ingrown hair [Unknown]
  - Inadequate analgesia [Unknown]
